FAERS Safety Report 9137879 (Version 1)
Quarter: 2013Q1

REPORT INFORMATION
  Report Type: Report from Study
  Country: US (occurrence: US)
  Receive Date: 20130304
  Receipt Date: 20130304
  Transmission Date: 20140127
  Serious: Yes (Hospitalization)
  Sender: FDA-Public Use
  Company Number: US-UCBSA-079011

PATIENT
  Age: 49 Year
  Sex: Male
  Weight: 108.2 kg

DRUGS (9)
  1. LACOSAMIDE [Suspect]
     Indication: EPILEPSY
     Route: 048
     Dates: start: 20110311
  2. VIRACEPT [Concomitant]
     Indication: ACUTE HIV INFECTION
     Route: 048
     Dates: start: 2000
  3. RESCRIPTOR [Concomitant]
     Indication: ACUTE HIV INFECTION
     Route: 048
     Dates: start: 2000
  4. ZIAGEN [Concomitant]
     Indication: ACUTE HIV INFECTION
     Route: 048
     Dates: start: 2000
  5. AMITRIPTYLINE [Concomitant]
     Indication: NEUROPATHY PERIPHERAL
     Route: 048
     Dates: start: 200611
  6. ISONIAZID [Concomitant]
     Indication: ANTIBIOTIC PROPHYLAXIS
     Route: 048
     Dates: start: 20110513
  7. KEPPRA [Concomitant]
     Indication: EPILEPSY
     Route: 048
     Dates: start: 20111210
  8. VITAMIN B6 [Concomitant]
     Indication: VITAMIN SUPPLEMENTATION
     Route: 048
     Dates: start: 20110513
  9. ACYCLOVIR [Concomitant]
     Indication: HERPES ZOSTER
     Route: 048
     Dates: start: 1994

REACTIONS (1)
  - Status epilepticus [Recovered/Resolved]
